FAERS Safety Report 9521450 (Version 2)
Quarter: 2013Q4

REPORT INFORMATION
  Report Type: Spontaneous
  Country: US (occurrence: US)
  Receive Date: 20130913
  Receipt Date: 20131104
  Transmission Date: 20140711
  Serious: Yes (Hospitalization)
  Sender: FDA-Public Use
  Company Number: US-PFIZER INC-2013264187

PATIENT
  Age: 87 Year
  Sex: Female

DRUGS (2)
  1. LIPITOR [Suspect]
     Indication: BLOOD CHOLESTEROL INCREASED
     Dosage: 40 MG, 1X/DAY
     Route: 048
  2. DETROL LA [Suspect]
     Indication: URINARY INCONTINENCE
     Dosage: UNK, 1X/DAY
     Route: 048

REACTIONS (1)
  - Cataract [Unknown]
